FAERS Safety Report 4442415-1 (Version None)
Quarter: 2004Q3

REPORT INFORMATION
  Report Type: 
  Country: None (occurrence: None)
  Receive Date: 20040903
  Receipt Date: 20040706
  Transmission Date: 20050211
  Serious: Yes (Other)
  Sender: FDA-Public Use
  Company Number: 2004UW13852

PATIENT
  Age: 78 Year
  Sex: Male
  Weight: 89.8122 kg

DRUGS (6)
  1. CRESTOR [Suspect]
     Indication: BLOOD CHOLESTEROL INCREASED
     Dates: start: 20031001
  2. COUMADIN [Concomitant]
  3. DIGOXIN [Concomitant]
  4. NADOLOL [Concomitant]
  5. DOXAZOSIN [Concomitant]
  6. ENALAPRIL [Concomitant]

REACTIONS (3)
  - FAECES DISCOLOURED [None]
  - MICTURITION DISORDER [None]
  - STOMACH DISCOMFORT [None]
